FAERS Safety Report 12210004 (Version 1)
Quarter: 2016Q1

REPORT INFORMATION
  Report Type: Spontaneous
  Country: US (occurrence: US)
  Receive Date: 20160325
  Receipt Date: 20160325
  Transmission Date: 20160526
  Serious: Yes (Other)
  Sender: FDA-Public Use
  Company Number: US-MDT-ADR-2016-00554

PATIENT
  Age: 67 Year
  Sex: Female

DRUGS (3)
  1. BUPIVACAINE [Suspect]
     Active Substance: BUPIVACAINE
     Route: 037
  2. DILAUDID [Suspect]
     Active Substance: HYDROMORPHONE HYDROCHLORIDE
     Route: 037
  3. BACLOFEN, UNKNOWN [Suspect]
     Active Substance: BACLOFEN
     Route: 037

REACTIONS (5)
  - Pain [None]
  - Arthralgia [None]
  - Arachnoiditis [None]
  - Back pain [None]
  - Muscle spasms [None]
